FAERS Safety Report 4505156-8 (Version None)
Quarter: 2004Q4

REPORT INFORMATION
  Report Type: 
  Country: None (occurrence: None)
  Receive Date: 20041116
  Receipt Date: 20041103
  Transmission Date: 20050328
  Serious: Yes (Life-Threatening, Hospitalization)
  Sender: FDA-Public Use
  Company Number: 430024M04USA

PATIENT
  Age: 34 Year
  Sex: Female

DRUGS (4)
  1. NOVANTRONE [Suspect]
     Indication: MULTIPLE SCLEROSIS
     Dosage: 12 MG/M2, 1 IN 3 MONTHS
     Dates: start: 20011002, end: 20040525
  2. SOLU-MEDROL [Concomitant]
  3. AVONEX [Suspect]
  4. IMMUNOGLOBULIN (IMMUNOGLOBULIN) [Concomitant]

REACTIONS (21)
  - ACIDOSIS [None]
  - AORTIC VALVE INCOMPETENCE [None]
  - CARDIAC FAILURE [None]
  - CARDIOGENIC SHOCK [None]
  - CARDIOMYOPATHY [None]
  - DISEASE PROGRESSION [None]
  - DISSEMINATED INTRAVASCULAR COAGULATION [None]
  - EJECTION FRACTION DECREASED [None]
  - HEART TRANSPLANT [None]
  - ISCHAEMIC HEPATITIS [None]
  - MITRAL VALVE INCOMPETENCE [None]
  - MULTIPLE SCLEROSIS [None]
  - POST PROCEDURAL HAEMORRHAGE [None]
  - PREMATURE MENOPAUSE [None]
  - PULMONARY VALVE INCOMPETENCE [None]
  - RENAL FAILURE ACUTE [None]
  - RESPIRATORY FAILURE [None]
  - SURGICAL PROCEDURE REPEATED [None]
  - TACHYCARDIA [None]
  - TRICUSPID VALVE INCOMPETENCE [None]
  - WHITE BLOOD CELL COUNT DECREASED [None]
